FAERS Safety Report 9062660 (Version 1)
Quarter: 2013Q1

REPORT INFORMATION
  Report Type: Other
  Country: GB (occurrence: GB)
  Receive Date: 20130213
  Receipt Date: 20130213
  Transmission Date: 20140127
  Serious: Yes (Life-Threatening, Other)
  Sender: FDA-Public Use
  Company Number: GB-WATSON-2013-02124

PATIENT
  Age: 40 Year
  Sex: Male
  Weight: 90 kg

DRUGS (6)
  1. SODIUM VALPROATE (UNKNOWN) [Suspect]
     Indication: NEURALGIA
     Dosage: 750 MG, BID
     Route: 048
     Dates: start: 20120128, end: 20130104
  2. PREGABALIN [Concomitant]
     Indication: PAIN
     Dosage: 300 MG, BID, STARTED MORE THAN 6 MONTHS AGO AND TREATMENT ONGOING
     Route: 048
  3. PARACETAMOL [Concomitant]
     Indication: PAIN
     Dosage: 1 G, UNK, STARTED MORE THAN 6 MONTHS AGO AND TREATMENT ONGOING
     Route: 048
  4. OXYNORM [Concomitant]
     Indication: PAIN
     Dosage: 9 MG, UNK, AS NECESSARY
     Route: 058
  5. BACLOFEN [Concomitant]
     Indication: MUSCLE SPASMS
     Dosage: 20 MG, TID, STARTED MORE THAN 6 MONTHS AGO AND TREATMENT ONGOING
     Route: 048
  6. DIAZEPAM [Concomitant]
     Indication: MUSCLE SPASMS
     Dosage: 20 MG, UNK, AS NECESSARY
     Route: 048

REACTIONS (2)
  - Neutropenia [Recovering/Resolving]
  - Sepsis [Recovering/Resolving]
